FAERS Safety Report 4279292-8 (Version None)
Quarter: 2004Q1

REPORT INFORMATION
  Report Type: 
  Country: None (occurrence: None)
  Receive Date: 20040126
  Receipt Date: 20040126
  Transmission Date: 20041129
  Serious: Yes (Other)
  Sender: FDA-Public Use
  Company Number: None

PATIENT
  Age: 78 Year
  Sex: Female
  Weight: 58.9676 kg

DRUGS (1)
  1. CLINDAMYCIN [Suspect]
     Dosage: ORAL
     Route: 048
     Dates: start: 20031005, end: 20031015

REACTIONS (1)
  - TOXIC DILATATION OF COLON [None]
